FAERS Safety Report 5490648-8 (Version None)
Quarter: 2007Q4

REPORT INFORMATION
  Report Type: 
  Country: None (occurrence: None)
  Receive Date: 20071019
  Receipt Date: 20071011
  Transmission Date: 20080405
  Serious: Yes (Hospitalization)
  Sender: FDA-Public Use
  Company Number: AT-BRISTOL-MYERS SQUIBB COMPANY-13943766

PATIENT
  Age: 69 Year

DRUGS (4)
  1. CETUXIMAB [Suspect]
     Indication: COLON CANCER
     Dosage: FIRST INFUSION-27/JUL/2007 MOST RECENT INFUSION-27/JUL/2007
     Route: 042
     Dates: start: 20070727
  2. OXALIPLATIN [Suspect]
     Indication: COLON CANCER
     Dosage: FIRST INFUSION-27/JUL/2007 MOST RECENT INFUSION-27/JUL/2007
     Route: 042
     Dates: start: 20070727
  3. FLUOROURACIL [Suspect]
     Indication: COLON CANCER
     Dosage: FIRST INFUSION-27/JUL/2007 MOST RECENT INFUSION-28/JUL/2007
     Route: 042
     Dates: start: 20070727
  4. FOLINIC ACID [Suspect]
     Indication: COLON CANCER
     Dosage: FIRST INFUSION-27/JUL/2007 MOST RECENT INFUSION-28/JUL/2007
     Route: 042
     Dates: start: 20070727

REACTIONS (3)
  - DIARRHOEA [None]
  - GASTRIC HAEMORRHAGE [None]
  - HYPOTENSION [None]
